FAERS Safety Report 14078684 (Version 3)
Quarter: 2018Q2

REPORT INFORMATION
  Report Type: Spontaneous
  Country: US (occurrence: US)
  Receive Date: 20171012
  Receipt Date: 20180409
  Transmission Date: 20180711
  Serious: No
  Sender: FDA-Public Use
  Company Number: US-IPSEN BIOPHARMACEUTICALS, INC.-2017-11705

PATIENT
  Age: 55 Year
  Sex: Female
  Weight: 73 kg

DRUGS (1)
  1. BOTOX [Suspect]
     Active Substance: ONABOTULINUMTOXINA
     Indication: BLEPHAROSPASM
     Dosage: 25 UNITS
     Dates: start: 20170822, end: 20170822

REACTIONS (2)
  - Eyelid ptosis [Recovering/Resolving]
  - Neuromuscular toxicity [Not Recovered/Not Resolved]

NARRATIVE: CASE EVENT DATE: 201708
